FAERS Safety Report 6642680-6 (Version None)
Quarter: 2010Q1

REPORT INFORMATION
  Report Type: 
  Country: None (occurrence: None)
  Receive Date: 20100316
  Receipt Date: 20100304
  Transmission Date: 20100710
  Serious: Yes (Other)
  Sender: FDA-Public Use
  Company Number: 2010AL001409

PATIENT
  Age: 81 Year
  Sex: Female

DRUGS (2)
  1. TRAMADOL HYDROCHLORIDE [Suspect]
     Indication: PAIN
     Dosage: 100 MG;BID;PO
     Route: 048
     Dates: start: 20091101, end: 20100101
  2. PARACETAMOL [Concomitant]

REACTIONS (3)
  - ALOPECIA [None]
  - CONTUSION [None]
  - STRESS [None]
